FAERS Safety Report 7245020-7 (Version None)
Quarter: 2011Q1

REPORT INFORMATION
  Report Type: 
  Country: None (occurrence: None)
  Receive Date: 20110126
  Receipt Date: 20110121
  Transmission Date: 20110831
  Serious: Yes (Death)
  Sender: FDA-Public Use
  Company Number: FR-SANOFI-AVENTIS-2011SA004101

PATIENT
  Age: 75 Year
  Sex: Male

DRUGS (17)
  1. ACUPAN [Suspect]
     Route: 060
     Dates: start: 20101201
  2. OXACILLIN [Suspect]
     Route: 051
     Dates: start: 20101211
  3. PROPOFAN [Concomitant]
     Route: 048
  4. PREVISCAN [Suspect]
     Route: 048
     Dates: start: 20101201
  5. DAFLON [Concomitant]
     Route: 048
  6. EFFEXOR [Concomitant]
     Route: 048
  7. BUDESONIDE/FORMOTEROL [Concomitant]
     Route: 055
  8. HEPARINE CHOAY [Suspect]
     Route: 058
     Dates: start: 20101218
  9. SPIRIVA [Concomitant]
     Route: 055
  10. LOVENOX [Suspect]
     Route: 058
     Dates: start: 20101201, end: 20101208
  11. OXEOL [Concomitant]
     Route: 048
  12. LYRICA [Concomitant]
     Route: 048
  13. TAREG [Concomitant]
     Route: 048
  14. ROCEPHIN [Suspect]
     Route: 042
     Dates: start: 20101111, end: 20101122
  15. VECTARION [Suspect]
     Route: 048
     Dates: start: 20101224
  16. TARDYFERON /GFR/ [Suspect]
     Route: 048
     Dates: start: 20101210
  17. LASIX [Concomitant]
     Route: 065

REACTIONS (3)
  - HAEMORRHAGE [None]
  - SHOCK HAEMORRHAGIC [None]
  - THROMBOCYTOPENIA [None]
